FAERS Safety Report 5652707-6 (Version None)
Quarter: 2008Q1

REPORT INFORMATION
  Report Type: 
  Country: None (occurrence: None)
  Receive Date: 20080131
  Receipt Date: 20071005
  Transmission Date: 20080703
  Serious: No
  Sender: FDA-Public Use
  Company Number: US200710001855

PATIENT
  Age: 56 Year
  Sex: Female

DRUGS (6)
  1. BYETTA [Suspect]
     Indication: TYPE 2 DIABETES MELLITUS
     Dosage: 5 UG,SUBCUTANEOUS;10UG,SUBCUTANEOUS;5 UG,2/D,SUBCUTANEOUS;10 UG,2/D,SUBCUTANEOUS
     Route: 058
     Dates: start: 20070101, end: 20070101
  2. BYETTA [Suspect]
     Indication: TYPE 2 DIABETES MELLITUS
     Dosage: 5 UG,SUBCUTANEOUS;10UG,SUBCUTANEOUS;5 UG,2/D,SUBCUTANEOUS;10 UG,2/D,SUBCUTANEOUS
     Route: 058
     Dates: start: 20070101, end: 20070901
  3. BYETTA [Suspect]
     Indication: TYPE 2 DIABETES MELLITUS
     Dosage: 5 UG,SUBCUTANEOUS;10UG,SUBCUTANEOUS;5 UG,2/D,SUBCUTANEOUS;10 UG,2/D,SUBCUTANEOUS
     Route: 058
     Dates: start: 20070901
  4. ACTOS [Concomitant]
  5. METFORMIN [Concomitant]
  6. GLIPIZIDE [Concomitant]

REACTIONS (3)
  - BLOOD GLUCOSE INCREASED [None]
  - JOINT SWELLING [None]
  - NAUSEA [None]
